FAERS Safety Report 9689433 (Version 1)
Quarter: 2013Q4

REPORT INFORMATION
  Report Type: Spontaneous
  Country: US (occurrence: US)
  Receive Date: 20131114
  Receipt Date: 20131114
  Transmission Date: 20140711
  Serious: Yes (Other)
  Sender: FDA-Public Use
  Company Number: US-RB-060352-13

PATIENT
  Sex: Female

DRUGS (1)
  1. BUPRENORPHINE GENERIC [Suspect]
     Indication: DRUG DEPENDENCE
     Route: 060

REACTIONS (2)
  - Maternal exposure during pregnancy [Recovered/Resolved]
  - Premature delivery [Recovered/Resolved]
